FAERS Safety Report 25725567 (Version 1)
Quarter: 2025Q3

REPORT INFORMATION
  Report Type: Spontaneous
  Country: MX (occurrence: MX)
  Receive Date: 20250826
  Receipt Date: 20250826
  Transmission Date: 20251020
  Serious: Yes (Other)
  Sender: COOPERSURGICAL
  Company Number: MX-COOPERSURGICAL, INC.-2025CPS006112

PATIENT
  Age: 26 Year
  Sex: Female

DRUGS (1)
  1. COPPER [Suspect]
     Active Substance: COPPER
     Indication: Contraception
     Route: 015
     Dates: start: 2020

REACTIONS (7)
  - Medical device site calcification [Recovered/Resolved]
  - Abortion incomplete [Recovered/Resolved]
  - Device dislocation [Recovered/Resolved]
  - Perforation [Recovered/Resolved]
  - Adhesion [Recovered/Resolved]
  - Pregnancy with contraceptive device [Recovered/Resolved]
  - Drug ineffective [Unknown]

NARRATIVE: CASE EVENT DATE: 20220101
